FAERS Safety Report 17253080 (Version 1)
Quarter: 2020Q1

REPORT INFORMATION
  Report Type: Report from Study
  Country: None (occurrence: US)
  Receive Date: 20200109
  Receipt Date: 20200109
  Transmission Date: 20200409
  Serious: Yes (Hospitalization, Other)
  Sender: FDA-Public Use
  Company Number: US-BIOVITRUM-2020US0001

PATIENT
  Sex: Male

DRUGS (1)
  1. KINERET [Suspect]
     Active Substance: ANAKINRA
     Indication: PLEURAL EFFUSION
     Route: 058
     Dates: end: 20190824

REACTIONS (11)
  - Upper respiratory tract infection [Unknown]
  - Off label use [Recovered/Resolved]
  - Tendonitis [Unknown]
  - Epicondylitis [Unknown]
  - Arthralgia [Unknown]
  - Chest pain [Unknown]
  - Cough [Unknown]
  - Micturition disorder [Unknown]
  - Pleuritic pain [Unknown]
  - Rheumatoid factor positive [Unknown]
  - Night sweats [Unknown]
